FAERS Safety Report 11464336 (Version 1)
Quarter: 2015Q3

REPORT INFORMATION
  Report Type: Spontaneous
  Country: US (occurrence: US)
  Receive Date: 20150831
  Receipt Date: 20150831
  Transmission Date: 20151125
  Serious: No
  Sender: FDA-Public Use
  Company Number: US-ELI_LILLY_AND_COMPANY-US201106008203

PATIENT
  Sex: Female
  Weight: 111.11 kg

DRUGS (13)
  1. VALIUM [Concomitant]
     Active Substance: DIAZEPAM
     Dosage: 5 MG, PRN
  2. CYMBALTA [Suspect]
     Active Substance: DULOXETINE HYDROCHLORIDE
     Indication: DEPRESSION
     Dosage: 90 MG, QD
     Dates: start: 2007
  3. GABAPENTIN. [Concomitant]
     Active Substance: GABAPENTIN
  4. MOBIC [Concomitant]
     Active Substance: MELOXICAM
     Dosage: 15 MG, PRN
  5. CYMBALTA [Suspect]
     Active Substance: DULOXETINE HYDROCHLORIDE
     Dosage: 90 MG, QD
  6. LORTAB [Concomitant]
     Active Substance: ACETAMINOPHEN\HYDROCODONE BITARTRATE
     Dosage: UNK, PRN
  7. NEURONTIN [Concomitant]
     Active Substance: GABAPENTIN
     Dosage: 100 MG, PRN
  8. TRAMADOL. [Concomitant]
     Active Substance: TRAMADOL
  9. PRILOSEC [Concomitant]
     Active Substance: OMEPRAZOLE MAGNESIUM
     Dosage: UNK, QD
  10. TRAZODONE [Concomitant]
     Active Substance: TRAZODONE HYDROCHLORIDE
     Dosage: UNK UNK, PRN
  11. ANTIHISTAMINES [Concomitant]
     Active Substance: ANTIHISTAMINES NOS
  12. DIAZEPAM. [Concomitant]
     Active Substance: DIAZEPAM
  13. VESICARE [Concomitant]
     Active Substance: SOLIFENACIN SUCCINATE
     Dosage: 10 MG, QD

REACTIONS (7)
  - Intervertebral disc degeneration [Not Recovered/Not Resolved]
  - Anxiety [Unknown]
  - Intervertebral disc protrusion [Not Recovered/Not Resolved]
  - Feeling of despair [Unknown]
  - Intervertebral disc space narrowing [Not Recovered/Not Resolved]
  - Depressed mood [Unknown]
  - Back pain [Not Recovered/Not Resolved]

NARRATIVE: CASE EVENT DATE: 2010
